FAERS Safety Report 18289510 (Version 1)
Quarter: 2020Q3

REPORT INFORMATION
  Report Type: Spontaneous
  Country: US (occurrence: US)
  Receive Date: 20200921
  Receipt Date: 20200921
  Transmission Date: 20201103
  Serious: No
  Sender: FDA-Public Use
  Company Number: US-BRAINTREE LABORATORIES-190675

PATIENT
  Age: 66 Year
  Sex: Female
  Weight: 71.67 kg

DRUGS (1)
  1. SUPREP BOWEL PREP [Suspect]
     Active Substance: MAGNESIUM SULFATE\POTASSIUM SULFATE\SODIUM SULFATE
     Indication: COLONOSCOPY
     Dosage: 1 X 6 OZ. BOTTLE
     Route: 048
     Dates: start: 20191211, end: 20191211

REACTIONS (4)
  - Abdominal distension [None]
  - Nausea [None]
  - Mucous stools [None]
  - Abdominal pain upper [None]

NARRATIVE: CASE EVENT DATE: 20191211
